FAERS Safety Report 8602075-2 (Version None)
Quarter: 2012Q3

REPORT INFORMATION
  Report Type: 
  Country: None (occurrence: None)
  Receive Date: 20120817
  Receipt Date: 20120808
  Transmission Date: 20120928
  Serious: Yes (Other)
  Sender: FDA-Public Use
  Company Number: US-ABBOTT-11P-163-0844675-00

PATIENT
  Sex: Male
  Weight: 101.24 kg

DRUGS (1)
  1. HUMIRA [Suspect]
     Indication: CROHN'S DISEASE
     Route: 058
     Dates: start: 20110101

REACTIONS (2)
  - SMALL INTESTINAL STENOSIS [None]
  - SMALL INTESTINAL OBSTRUCTION [None]
